FAERS Safety Report 5995384-7 (Version None)
Quarter: 2008Q4

REPORT INFORMATION
  Report Type: 
  Country: None (occurrence: None)
  Receive Date: 20081212
  Receipt Date: 20081202
  Transmission Date: 20090506
  Serious: Yes (Hospitalization, Other)
  Sender: FDA-Public Use
  Company Number: GB-PFIZER INC-2008150350

PATIENT

DRUGS (3)
  1. SUTENT [Suspect]
     Indication: METASTATIC RENAL CELL CARCINOMA
  2. AMLODIPINE BESILATE [Concomitant]
     Dosage: 5 MG, 1X/DAY
  3. ENALAPRIL [Concomitant]
     Dosage: 4 MG, 1X/DAY

REACTIONS (1)
  - TUBULOINTERSTITIAL NEPHRITIS [None]
